FAERS Safety Report 7723600-X (Version None)
Quarter: 2011Q3

REPORT INFORMATION
  Report Type: 
  Country: None (occurrence: None)
  Receive Date: 20110826
  Receipt Date: 20110818
  Transmission Date: 20111222
  Serious: Yes (Other)
  Sender: FDA-Public Use
  Company Number: 121746

PATIENT
  Age: 50 Year
  Sex: Male

DRUGS (1)
  1. CERUBIDINE [Suspect]
     Indication: ACUTE MYELOID LEUKAEMIA
     Dosage: 120 MG, 1X/DAY, IV
     Route: 042
     Dates: start: 20080723, end: 20080725

REACTIONS (1)
  - CYTOLYTIC HEPATITIS [None]
